FAERS Safety Report 5217278-7 (Version None)
Quarter: 2007Q1

REPORT INFORMATION
  Report Type: 
  Country: None (occurrence: None)
  Receive Date: 20070124
  Receipt Date: 20051213
  Transmission Date: 20070707
  Serious: No
  Sender: FDA-Public Use
  Company Number: US-GLAXOSMITHKLINE-A0585703A

PATIENT
  Age: 73 Year
  Sex: Female

DRUGS (3)
  1. PAXIL CR [Suspect]
     Indication: DEPRESSION
     Dosage: 12.5MG PER DAY
     Route: 048
     Dates: start: 20051101
  2. DEXEDRINE [Concomitant]
  3. SONATA [Concomitant]

REACTIONS (2)
  - DRUG ADMINISTRATION ERROR [None]
  - DRUG INEFFECTIVE [None]
